FAERS Safety Report 5299387-X (Version None)
Quarter: 2007Q2

REPORT INFORMATION
  Report Type: 
  Country: None (occurrence: None)
  Receive Date: 20070411
  Receipt Date: 20070411
  Transmission Date: 20071010
  Serious: Yes (Other)
  Sender: FDA-Public Use
  Company Number: None

PATIENT
  Sex: Male
  Weight: 108.8633 kg

DRUGS (1)
  1. AVELOX [Suspect]
     Indication: PNEUMONIA
     Dates: start: 20070326

REACTIONS (1)
  - HYPOGLYCAEMIA [None]
